FAERS Safety Report 14966813 (Version 1)
Quarter: 2018Q2

REPORT INFORMATION
  Report Type: Spontaneous
  Country: CN (occurrence: CN)
  Receive Date: 20180604
  Receipt Date: 20180604
  Transmission Date: 20180711
  Serious: No
  Sender: FDA-Public Use
  Company Number: CN-CHEPLA-1942291

PATIENT
  Age: 50 Year
  Sex: Female
  Weight: 69 kg

DRUGS (1)
  1. XENICAL [Suspect]
     Active Substance: ORLISTAT
     Indication: WEIGHT CONTROL
     Route: 048
     Dates: start: 20170521

REACTIONS (2)
  - No adverse event [Unknown]
  - Drug ineffective [Unknown]
